FAERS Safety Report 6124465-2 (Version None)
Quarter: 2009Q1

REPORT INFORMATION
  Report Type: 
  Country: None (occurrence: None)
  Receive Date: 20090317
  Receipt Date: 20090317
  Transmission Date: 20090719
  Serious: No
  Sender: FDA-Public Use
  Company Number: None

PATIENT
  Age: 58 Year
  Sex: Female
  Weight: 90.2658 kg

DRUGS (1)
  1. CLOZAPINE [Suspect]
     Dosage: 25 MG BIDHS INJ
     Route: 058

REACTIONS (1)
  - PAROTID GLAND ENLARGEMENT [None]
